FAERS Safety Report 4902673-3 (Version None)
Quarter: 2006Q1

REPORT INFORMATION
  Report Type: 
  Country: None (occurrence: None)
  Receive Date: 20060207
  Receipt Date: 20050428
  Transmission Date: 20060701
  Serious: Yes (Death, Hospitalization, Disabling)
  Sender: FDA-Public Use
  Company Number: US-MERCK-0505USA00114

PATIENT
  Age: 68 Year
  Sex: Female
  Weight: 61 kg

DRUGS (3)
  1. VIOXX [Suspect]
     Indication: ARTHRALGIA
     Route: 048
     Dates: start: 20010608, end: 20021224
  2. MOTRIN [Concomitant]
     Route: 048
  3. EXTRA STRENGTH TYLENOL [Concomitant]
     Route: 048

REACTIONS (9)
  - CARDIAC DISORDER [None]
  - CARDIOVASCULAR DISORDER [None]
  - CEREBROVASCULAR ACCIDENT [None]
  - DEATH [None]
  - HAEMORRHAGE INTRACRANIAL [None]
  - INJURY [None]
  - PAIN [None]
  - PNEUMONIA [None]
  - RESPIRATORY DISTRESS [None]
